FAERS Safety Report 9665172 (Version 2)
Quarter: 2013Q4

REPORT INFORMATION
  Report Type: Spontaneous
  Country: JP (occurrence: JP)
  Receive Date: 20131101
  Receipt Date: 20131113
  Transmission Date: 20140711
  Serious: Yes (Other)
  Sender: FDA-Public Use
  Company Number: JP-PFIZER INC-2013309028

PATIENT
  Age: 9 Decade
  Sex: Male

DRUGS (1)
  1. JZOLOFT [Suspect]
     Dosage: 25 MG, DAILY
     Route: 048

REACTIONS (4)
  - Cerebral haemorrhage [Unknown]
  - Back pain [Unknown]
  - Nocturia [Unknown]
  - Pain in extremity [Unknown]
